FAERS Safety Report 21343543 (Version 1)
Quarter: 2022Q3

REPORT INFORMATION
  Report Type: Report from Study
  Country: GB (occurrence: GB)
  Receive Date: 20220916
  Receipt Date: 20220916
  Transmission Date: 20221027
  Serious: Yes (Other)
  Sender: FDA-Public Use
  Company Number: GB-ROCHE-3159542

PATIENT
  Age: 83 Year
  Sex: Female
  Weight: 64.2 kg

DRUGS (15)
  1. CARBOPLATIN [Suspect]
     Active Substance: CARBOPLATIN
     Indication: Small cell lung cancer extensive stage
     Dosage: THERAPY END DATE : NOT ASKED, UNIT DOSE : 300 MG,
     Route: 065
     Dates: start: 20220718
  2. ETOPOSIDE [Suspect]
     Active Substance: ETOPOSIDE
     Indication: Small cell lung cancer extensive stage
     Dosage: UNIT DOSE : 132 MG,THERAPY END DATE : NOT ASKED
     Route: 042
     Dates: start: 20220718
  3. ATEZOLIZUMAB [Suspect]
     Active Substance: ATEZOLIZUMAB
     Indication: Small cell lung cancer extensive stage
     Dosage: THERAPY END DATE : NOT ASKED, UNIT DOSE : 1200 MG,
     Route: 042
     Dates: start: 20220624
  4. ETOPOSIDE [Suspect]
     Active Substance: ETOPOSIDE
     Indication: Product used for unknown indication
     Dosage: UNIT DOSE : 600 MG, THERAPY END DATE : NOT ASKED
     Route: 048
     Dates: start: 20220718
  5. AMLODIPINE [Concomitant]
     Active Substance: AMLODIPINE BESYLATE
     Indication: Product used for unknown indication
     Route: 065
     Dates: end: 20220801
  6. FLUCLOXACILLIN [Concomitant]
     Active Substance: FLUCLOXACILLIN
     Indication: Product used for unknown indication
     Dosage: FREQUENCY : 4 , FREQUENCY TIME : 1 DAYS
     Route: 065
     Dates: start: 20220830
  7. POLYETHYLENE GLYCOL 3350\POTASSIUM CHLORIDE\SODIUM BICARBONATE\SODIUM [Concomitant]
     Active Substance: POLYETHYLENE GLYCOL 3350\POTASSIUM CHLORIDE\SODIUM BICARBONATE\SODIUM CHLORIDE
     Indication: Product used for unknown indication
     Dosage: FREQUENCY : 3 , FREQUENCY TIME : 1 DAYS
     Route: 065
  8. LORAZEPAM [Concomitant]
     Active Substance: LORAZEPAM
     Indication: Product used for unknown indication
     Dosage: FREQUENCY : 1 , FREQUENCY TIME : 1 AS REQUIRED
     Route: 065
     Dates: start: 20220714
  9. MORPHINE SULFATE [Concomitant]
     Active Substance: MORPHINE SULFATE
     Indication: Product used for unknown indication
     Dosage: FREQUENCY : 2 , FREQUENCY TIME : 1 DAYS
     Route: 065
     Dates: start: 20220711
  10. OMEPRAZOLE [Concomitant]
     Active Substance: OMEPRAZOLE
     Indication: Product used for unknown indication
     Dosage: FREQUENCY : 1 , FREQUENCY TIME : 1 DAYS
     Route: 065
     Dates: end: 20220801
  11. ONDANSETRON [Concomitant]
     Active Substance: ONDANSETRON
     Indication: Product used for unknown indication
     Dosage: UNIT DOSE : 8 MG, THERAPY DURATION : 1 DAYS
     Route: 065
     Dates: start: 20220624, end: 20220624
  12. ONDANSETRON [Concomitant]
     Active Substance: ONDANSETRON
     Dosage: UNIT DOSE : 8 MG, THERAPY DURATION : 1 DAYS
     Route: 065
     Dates: start: 20220718, end: 20220718
  13. MORPHINE SULFATE [Concomitant]
     Active Substance: MORPHINE SULFATE
     Indication: Product used for unknown indication
     Dosage: FREQUENCY : 1 , FREQUENCY TIME : 1 AS REQUIRED
     Route: 065
     Dates: start: 20220714
  14. SENOKOT [Concomitant]
     Active Substance: SENNOSIDES
     Indication: Product used for unknown indication
     Route: 065
     Dates: start: 202206
  15. THYROXINE [Concomitant]
     Active Substance: LEVOTHYROXINE
     Indication: Product used for unknown indication
     Dosage: FREQUENCY : 1 , FREQUENCY TIME : 1 DAYS
     Route: 065
     Dates: start: 2004

REACTIONS (6)
  - Lower respiratory tract infection [Recovered/Resolved]
  - Alopecia [Recovered/Resolved]
  - Fatigue [Not Recovered/Not Resolved]
  - Pyrexia [Not Recovered/Not Resolved]
  - Vomiting [Not Recovered/Not Resolved]
  - Headache [Recovered/Resolved]

NARRATIVE: CASE EVENT DATE: 20220701
